FAERS Safety Report 8264229-7 (Version None)
Quarter: 2012Q2

REPORT INFORMATION
  Report Type: 
  Country: None (occurrence: None)
  Receive Date: 20120406
  Receipt Date: 20120328
  Transmission Date: 20120825
  Serious: Yes (Other)
  Sender: FDA-Public Use
  Company Number: CA-JNJFOC-20120314092

PATIENT
  Sex: Female
  Weight: 78 kg

DRUGS (3)
  1. BENADRYL [Concomitant]
     Indication: PREMEDICATION
     Route: 048
  2. REMICADE [Suspect]
     Indication: CROHN'S DISEASE
     Route: 042
     Dates: start: 20120313
  3. REMICADE [Suspect]
     Route: 042
     Dates: start: 20100301

REACTIONS (2)
  - FUNGAL INFECTION [None]
  - THROAT TIGHTNESS [None]
